FAERS Safety Report 16960621 (Version 1)
Quarter: 2019Q4

REPORT INFORMATION
  Report Type: Spontaneous
  Country: CA (occurrence: CA)
  Receive Date: 20191025
  Receipt Date: 20191025
  Transmission Date: 20200122
  Serious: Yes (Other)
  Sender: FDA-Public Use
  Company Number: CA-TEVA-2019-CA-1126256

PATIENT
  Age: 60 Year
  Sex: Male

DRUGS (7)
  1. MORPHINE [Concomitant]
     Active Substance: MORPHINE
     Indication: BREAKTHROUGH PAIN
     Dosage: 900 MILLIGRAM DAILY;
     Route: 048
  2. METHADONE [Interacting]
     Active Substance: METHADONE HYDROCHLORIDE
     Indication: PRODUCT USED FOR UNKNOWN INDICATION
     Dosage: 45 MILLIGRAM DAILY;
     Route: 048
  3. METHADONE [Interacting]
     Active Substance: METHADONE HYDROCHLORIDE
     Dosage: 60 MILLIGRAM DAILY;
     Route: 048
  4. FLUCONAZOLE. [Interacting]
     Active Substance: FLUCONAZOLE
     Indication: ORAL CANDIDIASIS
     Dosage: 100 MILLIGRAM DAILY;
     Route: 042
  5. APO-FLUCONAZOLE [Interacting]
     Active Substance: FLUCONAZOLE
     Indication: ORAL CANDIDIASIS
     Dosage: 100 MILLIGRAM DAILY;
     Route: 048
  6. FLUCONAZOLE. [Suspect]
     Active Substance: FLUCONAZOLE
     Indication: ORAL CANDIDIASIS
     Dosage: 100 MILLIGRAM DAILY;
     Route: 048
  7. OMEPRAZOLE. [Interacting]
     Active Substance: OMEPRAZOLE
     Indication: PRODUCT USED FOR UNKNOWN INDICATION
     Dosage: 20 MILLIGRAM DAILY;
     Route: 048

REACTIONS (7)
  - Drug interaction [Recovered/Resolved]
  - Hallucinations, mixed [Recovered/Resolved]
  - Myoclonus [Recovered/Resolved]
  - Drug ineffective [Recovered/Resolved]
  - Somnolence [Recovered/Resolved]
  - Neurotoxicity [Recovered/Resolved]
  - Respiratory depression [Recovered/Resolved]
